FAERS Safety Report 14782085 (Version 5)
Quarter: 2018Q4

REPORT INFORMATION
  Report Type: Spontaneous
  Country: DE (occurrence: DE)
  Receive Date: 20180420
  Receipt Date: 20181011
  Transmission Date: 20190204
  Serious: Yes (Other)
  Sender: FDA-Public Use
  Company Number: DE-TEVA-2018-DE-883720

PATIENT
  Age: 73 Year
  Sex: Male
  Weight: 70.5 kg

DRUGS (12)
  1. DABIGATRAN [Interacting]
     Active Substance: DABIGATRAN
     Indication: ATRIAL FIBRILLATION
     Dosage: 220 MILLIGRAM DAILY;
     Route: 048
     Dates: start: 201701
  2. DEKRISTOL [Concomitant]
     Active Substance: CHOLECALCIFEROL
     Indication: VITAMIN D DEFICIENCY
     Dosage: 20000 IU (INTERNATIONAL UNIT) DAILY;
     Route: 048
     Dates: start: 20151122
  3. MAGNESIUM [Concomitant]
     Active Substance: MAGNESIUM
     Indication: MAGNESIUM DEFICIENCY
     Dosage: 600 MILLIGRAM DAILY;
     Route: 048
     Dates: start: 20170101
  4. TORASEMID [Concomitant]
     Active Substance: TORSEMIDE
     Indication: OEDEMA
     Dosage: 20 MILLIGRAM DAILY;
     Route: 048
     Dates: start: 201701
  5. CLOPIDOGREL [Suspect]
     Active Substance: CLOPIDOGREL BISULFATE
     Indication: CORONARY ARTERY DISEASE
     Dosage: 75 MILLIGRAM DAILY;
     Route: 048
     Dates: start: 20160613, end: 20170719
  6. SPIRONOLACTON [Concomitant]
     Active Substance: SPIRONOLACTONE
     Indication: OEDEMA
     Dosage: 100 MILLIGRAM DAILY;
     Route: 048
     Dates: start: 20161129
  7. BISOPROLOL [Concomitant]
     Active Substance: BISOPROLOL
     Indication: HYPERTENSION
     Dosage: 7.5 MILLIGRAM DAILY;
     Route: 048
     Dates: start: 20160616
  8. CAMELLIA SINENSIS [Concomitant]
     Active Substance: GREEN TEA LEAF
     Indication: AMYLOIDOSIS
     Dosage: 4 DOSAGE FORMS DAILY;
     Route: 048
  9. ALLOPURINOL. [Concomitant]
     Active Substance: ALLOPURINOL
     Indication: BLOOD URIC ACID INCREASED
     Dosage: 100 MILLIGRAM DAILY;
     Route: 048
     Dates: start: 20151118
  10. ASPIRIN. [Interacting]
     Active Substance: ASPIRIN
     Indication: CORONARY ARTERY DISEASE
     Dosage: 100 MILLIGRAM DAILY;
     Route: 048
     Dates: start: 20160613, end: 20170719
  11. KALIUMCHLORID [Concomitant]
     Active Substance: POTASSIUM CHLORIDE
     Indication: HYPOKALAEMIA
     Dosage: 1200 MG MILLIGRAM(S) EVERY 8 HOUR
     Route: 048
     Dates: start: 20161129
  12. MEGLUMIN [Suspect]
     Active Substance: MEGLUMINE
     Indication: AMYLOIDOSIS
     Dosage: DOSE: 20 OR 80 MG
     Route: 065
     Dates: start: 20170704

REACTIONS (3)
  - Labelled drug-drug interaction medication error [Unknown]
  - Product administration error [Unknown]
  - Bleeding time prolonged [Recovered/Resolved]

NARRATIVE: CASE EVENT DATE: 20170717
